FAERS Safety Report 15298274 (Version 1)
Quarter: 2018Q3

REPORT INFORMATION
  Report Type: Report from Study
  Country: GB (occurrence: GB)
  Receive Date: 20180820
  Receipt Date: 20180820
  Transmission Date: 20181010
  Serious: Yes (Death, Hospitalization)
  Sender: FDA-Public Use
  Company Number: PHHY2018GB074416

PATIENT
  Age: 59 Year
  Sex: Male

DRUGS (1)
  1. ENTRESTO [Suspect]
     Active Substance: SACUBITRIL\VALSARTAN
     Indication: PRODUCT USED FOR UNKNOWN INDICATION
     Dosage: 50 MG (24MG OF SACUBITRIL AND 26MG OF VALSARTAN), BID
     Route: 048
     Dates: start: 20180630

REACTIONS (5)
  - Cardiac arrest [Fatal]
  - Type 2 diabetes mellitus [Fatal]
  - Acute myocardial infarction [Fatal]
  - Myocardial ischaemia [Fatal]
  - Peripheral vascular disorder [Fatal]

NARRATIVE: CASE EVENT DATE: 20180720
